FAERS Safety Report 7868140-2 (Version None)
Quarter: 2011Q4

REPORT INFORMATION
  Report Type: 
  Country: None (occurrence: None)
  Receive Date: 20111028
  Receipt Date: 20111014
  Transmission Date: 20120403
  Serious: Yes (Other)
  Sender: FDA-Public Use
  Company Number: CA-ELI_LILLY_AND_COMPANY-CA201110003540

PATIENT
  Sex: Female

DRUGS (8)
  1. TRAZODONE HYDROCHLORIDE [Concomitant]
  2. ARTHROTEC [Concomitant]
     Dosage: 50 DF, UNKNOWN
  3. NOVO-ATENOL [Concomitant]
     Dosage: 50 MG, UNKNOWN
  4. ZYPREXA [Suspect]
     Dosage: 5 MG, UNKNOWN
     Dates: start: 19980826
  5. ZYPREXA [Suspect]
     Dosage: UNK UNK, UNKNOWN
  6. LORAZEPAM [Concomitant]
     Dosage: 2 MG, UNKNOWN
  7. PAXIL [Concomitant]
     Dosage: 20 MG, UNKNOWN
  8. ADALAT CC [Concomitant]
     Dosage: 30 MG, UNKNOWN

REACTIONS (2)
  - WEIGHT INCREASED [None]
  - DIABETES MELLITUS [None]
